FAERS Safety Report 20712113 (Version 1)
Quarter: 2022Q2

REPORT INFORMATION
  Report Type: Spontaneous
  Country: JP (occurrence: JP)
  Receive Date: 20220414
  Receipt Date: 20220414
  Transmission Date: 20220721
  Serious: Yes (Other)
  Sender: FDA-Public Use
  Company Number: JP-BAYER-2022A045274

PATIENT
  Age: 79 Year
  Sex: Male

DRUGS (4)
  1. XARELTO [Suspect]
     Active Substance: RIVAROXABAN
     Indication: Product used for unknown indication
     Dosage: 10 MG, QD
     Route: 048
  2. XARELTO [Suspect]
     Active Substance: RIVAROXABAN
     Dosage: 10 MG, QD
     Route: 048
  3. XARELTO [Suspect]
     Active Substance: RIVAROXABAN
     Dosage: DAILYDOSE 20MG
     Route: 048
     Dates: start: 20220326, end: 20220328
  4. XARELTO [Suspect]
     Active Substance: RIVAROXABAN
     Dosage: 10 MG, QD AROUND MAR 29 OR MAR 30
     Route: 048

REACTIONS (4)
  - Haematemesis [Recovered/Resolved]
  - Anaemia [Unknown]
  - Cytopenia [Unknown]
  - Incorrect dose administered [Unknown]

NARRATIVE: CASE EVENT DATE: 20220101
